FAERS Safety Report 11803231 (Version 1)
Quarter: 2015Q4

REPORT INFORMATION
  Report Type: Spontaneous
  Country: US (occurrence: US)
  Receive Date: 20151204
  Receipt Date: 20151204
  Transmission Date: 20160305
  Serious: Yes (Hospitalization)
  Sender: FDA-Public Use
  Company Number: US-BAYER-2015-480259

PATIENT
  Age: 70 Year
  Sex: Female

DRUGS (5)
  1. ENOXAPARIN [Interacting]
     Active Substance: ENOXAPARIN
  2. METOPROLOL [Concomitant]
     Active Substance: METOPROLOL
  3. CLOPIDOGREL [Interacting]
     Active Substance: CLOPIDOGREL BISULFATE
  4. EPTIFIBATIDE. [Interacting]
     Active Substance: EPTIFIBATIDE
  5. ACETYLSALICYLIC ACID({=100 MG) [Suspect]
     Active Substance: ASPIRIN

REACTIONS (5)
  - Cardiogenic shock [Recovered/Resolved]
  - Coronary artery dissection [Recovered/Resolved]
  - Cardiac tamponade [Recovered/Resolved]
  - Labelled drug-drug interaction medication error [None]
  - Pericardial haemorrhage [Recovered/Resolved]
